FAERS Safety Report 9288966 (Version 1)
Quarter: 2013Q2

REPORT INFORMATION
  Report Type: Spontaneous
  Country: FR (occurrence: FR)
  Receive Date: 20130514
  Receipt Date: 20130514
  Transmission Date: 20140414
  Serious: Yes (Hospitalization)
  Sender: FDA-Public Use
  Company Number: FR-GLAXOSMITHKLINE-B0891203A

PATIENT
  Sex: Male

DRUGS (9)
  1. SORIATANE [Suspect]
     Indication: PSORIASIS
     Route: 048
     Dates: start: 2012, end: 2013
  2. COVERSYL [Suspect]
     Indication: PRODUCT USED FOR UNKNOWN INDICATION
     Dosage: 1TAB PER DAY
     Route: 065
     Dates: start: 2007
  3. EBIXA [Concomitant]
     Dosage: 20MG PER DAY
     Dates: start: 201105
  4. AMLOR [Concomitant]
     Dosage: 10MG PER DAY
     Dates: start: 200902
  5. TAHOR [Concomitant]
     Dosage: 80MG PER DAY
     Dates: start: 2007
  6. DUOPLAVIN [Concomitant]
     Dates: start: 2007
  7. GLUCOPHAGE [Concomitant]
     Dosage: 2000MG PER DAY
     Dates: start: 2007
  8. SELOKEN [Concomitant]
     Dosage: 200MG PER DAY
     Dates: start: 2007
  9. DIAMICRON [Concomitant]
     Dosage: 120MG PER DAY
     Dates: start: 2007

REACTIONS (1)
  - Angioedema [Recovered/Resolved]
